FAERS Safety Report 20217343 (Version 1)
Quarter: 2021Q4

REPORT INFORMATION
  Report Type: Spontaneous
  Country: US (occurrence: US)
  Receive Date: 20211222
  Receipt Date: 20211222
  Transmission Date: 20220303
  Serious: No
  Sender: FDA-Public Use
  Company Number: US-drreddys-SPO/USA/21/0144822

PATIENT
  Age: 61 Year
  Sex: Female
  Weight: 67.5 kg

DRUGS (1)
  1. BUPRENORPHINE\NALOXONE [Suspect]
     Active Substance: BUPRENORPHINE\NALOXONE
     Indication: Dependence
     Dosage: 8MG/2MG
     Route: 060
     Dates: start: 202111

REACTIONS (4)
  - Nausea [Unknown]
  - Extra dose administered [Unknown]
  - Product taste abnormal [Unknown]
  - Product physical issue [Unknown]
